FAERS Safety Report 9444084 (Version 1)
Quarter: 2013Q3

REPORT INFORMATION
  Report Type: Spontaneous
  Country: US (occurrence: US)
  Receive Date: 20130807
  Receipt Date: 20130807
  Transmission Date: 20140515
  Serious: Yes (Hospitalization, Other)
  Sender: FDA-Public Use
  Company Number: 2013SP005663

PATIENT
  Age: 54 Year
  Sex: Male

DRUGS (2)
  1. VANCOMYCIN [Suspect]
     Indication: PRODUCT USED FOR UNKNOWN INDICATION
  2. ETANERCEPT [Suspect]
     Indication: RHEUMATOID ARTHRITIS
     Dates: start: 20130204, end: 20130304

REACTIONS (4)
  - Staphylococcal infection [Recovered/Resolved]
  - Intervertebral disc disorder [Recovered/Resolved]
  - Renal failure [Recovered/Resolved]
  - Red man syndrome [Recovered/Resolved]
